FAERS Safety Report 26130794 (Version 1)
Quarter: 2025Q4

REPORT INFORMATION
  Report Type: Spontaneous
  Country: US (occurrence: None)
  Receive Date: 20251208
  Receipt Date: 20251208
  Transmission Date: 20260118
  Serious: Yes (Hospitalization)
  Sender: FDA-CTU
  Company Number: None

PATIENT
  Age: 68 Year
  Sex: Male
  Weight: 126 kg

DRUGS (2)
  1. EMPAGLIFLOZIN [Suspect]
     Active Substance: EMPAGLIFLOZIN
     Indication: Diabetes mellitus
     Dosage: 25 MG EVERY DAY PO
     Route: 048
     Dates: start: 20230324, end: 20251007
  2. SEMAGLUTIDE [Suspect]
     Active Substance: SEMAGLUTIDE
     Indication: Diabetes mellitus
     Dosage: 1 MG QWEEK SQ
     Route: 058
     Dates: start: 20241009

REACTIONS (3)
  - Respiratory alkalosis [None]
  - Euglycaemic diabetic ketoacidosis [None]
  - Gastroenteritis viral [None]

NARRATIVE: CASE EVENT DATE: 20251007
